FAERS Safety Report 6088819-5 (Version None)
Quarter: 2009Q1

REPORT INFORMATION
  Report Type: 
  Country: None (occurrence: None)
  Receive Date: 20090219
  Receipt Date: 20090203
  Transmission Date: 20090719
  Serious: Yes (Other)
  Sender: FDA-Public Use
  Company Number: 8038926

PATIENT

DRUGS (2)
  1. METHYLPHENIDATE HCL [Suspect]
  2. METHYLPHENIDATE HCL [Suspect]

REACTIONS (1)
  - DRUG ABUSE [None]
